FAERS Safety Report 5275605-9 (Version None)
Quarter: 2007Q1

REPORT INFORMATION
  Report Type: 
  Country: None (occurrence: None)
  Receive Date: 20070326
  Receipt Date: 20070313
  Transmission Date: 20070707
  Serious: Yes (Hospitalization)
  Sender: FDA-Public Use
  Company Number: DEWYE005013MAR07

PATIENT
  Age: 75 Year
  Sex: Female

DRUGS (3)
  1. ENBREL [Suspect]
     Indication: DRUG USE FOR UNKNOWN INDICATION
     Dosage: UNKNOWN
     Route: 058
     Dates: start: 20020101, end: 20050101
  2. ENBREL [Suspect]
     Route: 058
     Dates: start: 20050101
  3. LANTAREL [Concomitant]
     Indication: RHEUMATOID ARTHRITIS
     Route: 058
     Dates: start: 20000101

REACTIONS (2)
  - DEVICE RELATED INFECTION [None]
  - SALMONELLA SEPSIS [None]
